FAERS Safety Report 7652517-4 (Version None)
Quarter: 2011Q3

REPORT INFORMATION
  Report Type: 
  Country: None (occurrence: None)
  Receive Date: 20110728
  Receipt Date: 20110725
  Transmission Date: 20111222
  Serious: Yes (Death)
  Sender: FDA-Public Use
  Company Number: 201110926

PATIENT
  Age: 57 Year
  Sex: Male

DRUGS (5)
  1. DROPERIDOL [Concomitant]
  2. LIORESAL [Suspect]
     Indication: MUSCLE SPASTICITY
     Dosage: 249.93 MCG, DAILY, INTRATHECAL
     Route: 037
  3. DALIUDID [Concomitant]
  4. BUPIVACAINE HCL [Concomitant]
  5. CLONIDINE [Concomitant]

REACTIONS (1)
  - HEPATIC NEOPLASM MALIGNANT [None]
